FAERS Safety Report 14075981 (Version 1)
Quarter: 2017Q4

REPORT INFORMATION
  Report Type: Spontaneous
  Country: US (occurrence: US)
  Receive Date: 20171011
  Receipt Date: 20171011
  Transmission Date: 20180321
  Serious: No
  Sender: FDA-Public Use
  Company Number: US-BAYER-2017-193824

PATIENT
  Age: 62 Year
  Sex: Male
  Weight: 86 kg

DRUGS (3)
  1. VALIUM [Concomitant]
     Active Substance: DIAZEPAM
  2. MIRALAX [Suspect]
     Active Substance: POLYETHYLENE GLYCOL 3350
     Indication: GASTROINTESTINAL DISORDER
     Dosage: 1 DF, (IN WATER DOSE)
     Route: 048
     Dates: start: 20170918, end: 20171002
  3. SEROQUEL [Concomitant]
     Active Substance: QUETIAPINE FUMARATE

REACTIONS (3)
  - Incorrect drug administration duration [Unknown]
  - Diarrhoea [Unknown]
  - Bowel movement irregularity [Unknown]

NARRATIVE: CASE EVENT DATE: 20170918
